FAERS Safety Report 8104781-5 (Version None)
Quarter: 2012Q1

REPORT INFORMATION
  Report Type: 
  Country: None (occurrence: None)
  Receive Date: 20120130
  Receipt Date: 20120124
  Transmission Date: 20120608
  Serious: Yes (Death, Other)
  Sender: FDA-Public Use
  Company Number: US-PFIZER INC-2011298496

PATIENT
  Sex: Male

DRUGS (7)
  1. ZITHROMAX [Concomitant]
     Dosage: UNK, DAY 3
  2. VENTOLIN [Concomitant]
     Dosage: 108, 2X/DAY PRN
     Route: 048
  3. SUTENT [Suspect]
     Indication: RENAL CELL CARCINOMA
  4. SUTENT [Suspect]
     Indication: RENAL CANCER
     Dosage: 50 MG, 1X/DAY, DAILY
     Route: 048
     Dates: start: 20111101, end: 20111104
  5. ACETAMINOPHEN [Concomitant]
     Dosage: UNK, PRN
  6. POLYSACCHARIDE-IRON COMPLEX [Concomitant]
     Dosage: 150 MG, 2X/DAY
  7. MELOXICAM [Concomitant]
     Dosage: 7.5 MG, 2X/DAY

REACTIONS (13)
  - GASTROINTESTINAL HAEMORRHAGE [None]
  - DIZZINESS POSTURAL [None]
  - ORAL CANDIDIASIS [None]
  - COUGH [None]
  - DEPRESSED MOOD [None]
  - JOINT SWELLING [None]
  - ORTHOPNOEA [None]
  - BLOOD URINE PRESENT [None]
  - HYPONATRAEMIA [None]
  - NOCTURIA [None]
  - RESPIRATORY FAILURE [None]
  - MUSCULOSKELETAL CHEST PAIN [None]
  - DYSPNOEA PAROXYSMAL NOCTURNAL [None]
